FAERS Safety Report 10472961 (Version 1)
Quarter: 2014Q3

REPORT INFORMATION
  Report Type: Spontaneous
  Country: US (occurrence: US)
  Receive Date: 20140924
  Receipt Date: 20140924
  Transmission Date: 20150326
  Serious: No
  Sender: FDA-Public Use
  Company Number: US-PFIZER INC-2014261275

PATIENT
  Age: 57 Year
  Sex: Female
  Weight: 77.1 kg

DRUGS (2)
  1. TOVIAZ [Suspect]
     Active Substance: FESOTERODINE FUMARATE
     Indication: BLADDER DISORDER
     Dosage: UNK
     Dates: start: 20140918
  2. LEXAPRO [Concomitant]
     Active Substance: ESCITALOPRAM OXALATE
     Dosage: 10 MG, UNK

REACTIONS (7)
  - Swelling face [Recovered/Resolved]
  - Erythema [Recovered/Resolved]
  - Headache [Recovered/Resolved]
  - Dysphagia [Recovered/Resolved]
  - Throat tightness [Recovered/Resolved]
  - Dry mouth [Recovered/Resolved]
  - Burning sensation [Recovered/Resolved]

NARRATIVE: CASE EVENT DATE: 20140919
